FAERS Safety Report 24355386 (Version 2)
Quarter: 2025Q2

REPORT INFORMATION
  Report Type: Spontaneous
  Country: IT (occurrence: IT)
  Receive Date: 20240924
  Receipt Date: 20250430
  Transmission Date: 20250716
  Serious: Yes (Other)
  Sender: AUROBINDO
  Company Number: IT-PFIZER INC-2020350200

PATIENT
  Age: 70 Year
  Sex: Female

DRUGS (1)
  1. SERTRALINE [Suspect]
     Active Substance: SERTRALINE HYDROCHLORIDE
     Indication: Pseudodementia
     Dosage: 50 MILLIGRAM, ONCE A DAY
     Route: 065

REACTIONS (1)
  - Hallucination, visual [Recovered/Resolved]
